FAERS Safety Report 9182584 (Version 1)
Quarter: 2013Q1

REPORT INFORMATION
  Report Type: Spontaneous
  Country: US (occurrence: US)
  Receive Date: 20130322
  Receipt Date: 20130322
  Transmission Date: 20140127
  Serious: No
  Sender: FDA-Public Use
  Company Number: US-BRISTOL-MYERS SQUIBB COMPANY-16836645

PATIENT
  Age: 69 Year
  Sex: Male
  Weight: 77 kg

DRUGS (3)
  1. ERBITUX [Suspect]
     Dates: start: 20120517
  2. KLONOPIN [Concomitant]
  3. LORAZEPAM [Concomitant]

REACTIONS (1)
  - Anxiety [Unknown]
